FAERS Safety Report 25585959 (Version 1)
Quarter: 2025Q3

REPORT INFORMATION
  Report Type: Spontaneous
  Country: US (occurrence: None)
  Receive Date: 20250718
  Receipt Date: 20250718
  Transmission Date: 20251020
  Serious: No
  Sender: FDA-CTU
  Company Number: None

PATIENT
  Age: 29 Year
  Sex: Female
  Weight: 99 kg

DRUGS (3)
  1. MICONAZOLE 1 [Suspect]
     Active Substance: MICONAZOLE NITRATE
     Indication: Fungal infection
     Dosage: 3 TIMES VAGINAL ?
     Route: 067
     Dates: start: 20250716, end: 20250718
  2. Protonix Mirena IUD [Concomitant]
  3. ZYRTEC [Concomitant]
     Active Substance: CETIRIZINE HYDROCHLORIDE

REACTIONS (4)
  - Chemical burn of genitalia [None]
  - Burning sensation [None]
  - Pain [None]
  - Therapy cessation [None]

NARRATIVE: CASE EVENT DATE: 20250716
